FAERS Safety Report 10087939 (Version 2)
Quarter: 2014Q2

REPORT INFORMATION
  Report Type: Spontaneous
  Country: DE (occurrence: DE)
  Receive Date: 20140419
  Receipt Date: 20140419
  Transmission Date: 20141212
  Serious: Yes (Hospitalization, Other)
  Sender: FDA-Public Use
  Company Number: DE-ROCHE-1345717

PATIENT
  Sex: Male

DRUGS (17)
  1. MABTHERA [Suspect]
     Indication: B-CELL LYMPHOMA
     Route: 065
  2. MABTHERA [Suspect]
     Indication: CHRONIC LYMPHOCYTIC LEUKAEMIA
  3. PRADAXA [Concomitant]
  4. LOSARTAN [Concomitant]
  5. MOXONIDIN [Concomitant]
  6. SIMVASTATIN [Concomitant]
  7. SPIRONOLACTON [Concomitant]
  8. ASS100 [Concomitant]
  9. CYCLOPHOSPHAMID [Concomitant]
     Indication: CHRONIC LYMPHOCYTIC LEUKAEMIA
     Dosage: ACCORDING TO R-CHOP REGIMEN.
     Route: 065
     Dates: start: 201301
  10. CYCLOPHOSPHAMID [Concomitant]
     Indication: B-CELL LYMPHOMA
  11. DOXORUBICIN [Concomitant]
     Indication: CHRONIC LYMPHOCYTIC LEUKAEMIA
     Route: 065
     Dates: start: 201301
  12. DOXORUBICIN [Concomitant]
     Indication: B-CELL LYMPHOMA
  13. VINCRISTIN [Concomitant]
     Indication: CHRONIC LYMPHOCYTIC LEUKAEMIA
     Route: 065
     Dates: start: 201301
  14. VINCRISTIN [Concomitant]
     Indication: B-CELL LYMPHOMA
  15. PREDNISONE [Concomitant]
     Indication: CHRONIC LYMPHOCYTIC LEUKAEMIA
     Route: 065
     Dates: start: 201301
  16. PREDNISONE [Concomitant]
     Indication: B-CELL LYMPHOMA
  17. L-THYROXIN [Concomitant]
     Route: 065
     Dates: start: 1974

REACTIONS (5)
  - Stevens-Johnson syndrome [Not Recovered/Not Resolved]
  - Fatigue [Unknown]
  - Toxic epidermal necrolysis [Not Recovered/Not Resolved]
  - Cellulitis [Unknown]
  - Oedema [Unknown]
